FAERS Safety Report 5061158-7 (Version None)
Quarter: 2006Q3

REPORT INFORMATION
  Report Type: 
  Country: None (occurrence: None)
  Receive Date: 20060720
  Receipt Date: 20060705
  Transmission Date: 20061208
  Serious: Yes (Death)
  Sender: FDA-Public Use
  Company Number: 2006S1005600

PATIENT
  Age: 82 Year
  Sex: Female

DRUGS (14)
  1. CLOZAPINE [Suspect]
     Indication: PSYCHOTIC DISORDER
     Dosage: 12.5 MG; QD; ORAL
     Route: 048
     Dates: start: 20050825, end: 20060501
  2. LEVOSALBUTAMOL (CON.) [Concomitant]
  3. AMLODIPINE (CON.) [Concomitant]
  4. RAMIPRIL (CON.) [Concomitant]
  5. DICLOFENAC SODIUM (CON.) [Concomitant]
  6. FAMCICLOVIR (CON.) [Concomitant]
  7. LEVODOPA/CARBIDOPA (CON.) [Concomitant]
  8. ENTACAPONE (CON.) [Concomitant]
  9. ACETYLSALICYLIC ACID (CON.) [Concomitant]
  10. CLONAZEPAM (CON.) [Concomitant]
  11. PANTOPRAZOLE (CON.) [Concomitant]
  12. MONTELUKAST (CON.) [Concomitant]
  13. VITAMIN B12 (CON.) [Concomitant]
  14. NIFEREX (CON.) [Concomitant]

REACTIONS (1)
  - MYOCARDIAL INFARCTION [None]
